FAERS Safety Report 13652765 (Version 1)
Quarter: 2017Q2

REPORT INFORMATION
  Report Type: Spontaneous
  Country: US (occurrence: US)
  Receive Date: 20170614
  Receipt Date: 20170614
  Transmission Date: 20170830
  Serious: No
  Sender: FDA-Public Use
  Company Number: US-ROCHE-1046664

PATIENT
  Sex: Male

DRUGS (1)
  1. XELODA [Suspect]
     Active Substance: CAPECITABINE
     Indication: COLON CANCER

REACTIONS (8)
  - Dry skin [Unknown]
  - Abdominal pain upper [Unknown]
  - Therapeutic product ineffective [Unknown]
  - Dyspepsia [Unknown]
  - Blood urine present [Unknown]
  - Abdominal distension [Unknown]
  - Pruritus [Unknown]
  - Dysphagia [Unknown]
